FAERS Safety Report 8819952 (Version 6)
Quarter: 2014Q2

REPORT INFORMATION
  Report Type: Report from Study
  Country: JP (occurrence: JP)
  Receive Date: 20121001
  Receipt Date: 20140522
  Transmission Date: 20141212
  Serious: Yes (Hospitalization, Other)
  Sender: FDA-Public Use
  Company Number: JP-VERTEX PHARMACEUTICAL INC.-2012-021954

PATIENT
  Age: 43 Year
  Sex: Male

DRUGS (9)
  1. VX-950 (TELAPREVIR) [Suspect]
     Indication: CHRONIC HEPATITIS C
     Dosage: 2250 MG, QD
     Route: 048
     Dates: start: 20120615, end: 20120619
  2. PEGINTRON [Suspect]
     Indication: CHRONIC HEPATITIS C
     Dosage: 1.5 ?G/KG, QW (100 MCG/BODY)
     Route: 058
     Dates: start: 20120615, end: 20120706
  3. PEGINTRON [Suspect]
     Dosage: 80 MCG/BODY/WEEK
     Route: 058
     Dates: start: 20120713, end: 20120713
  4. PEGINTRON [Suspect]
     Dosage: 1.5 ?G/KG, QW (100 MCG/BODY)
     Route: 058
     Dates: start: 20120720, end: 20120908
  5. RIBAVIRIN [Suspect]
     Indication: CHRONIC HEPATITIS C
     Dosage: 800 MG, QD
     Route: 048
     Dates: start: 20120615, end: 20120915
  6. GASMOTIN [Concomitant]
     Dosage: 15 MG, QD
     Route: 048
  7. OMEPRAL [Concomitant]
     Dosage: 20 MG, QD
     Route: 048
  8. CEFDINIR [Concomitant]
     Dosage: 100 MG, QD
     Route: 048
  9. KOBALNON [Concomitant]
     Dosage: 150 MG, QD
     Route: 048

REACTIONS (3)
  - Transient ischaemic attack [Recovered/Resolved]
  - Neutrophil count decreased [Recovered/Resolved]
  - Neutrophil count decreased [Recovered/Resolved]
